FAERS Safety Report 13712638 (Version 1)
Quarter: 2017Q3

REPORT INFORMATION
  Report Type: Spontaneous
  Country: US (occurrence: US)
  Receive Date: 20170703
  Receipt Date: 20170703
  Transmission Date: 20171127
  Serious: No
  Sender: FDA-Public Use
  Company Number: US-HILL DERMACEUTICALS, INC.-2022861

PATIENT
  Sex: Female

DRUGS (1)
  1. TOLAK [Suspect]
     Active Substance: FLUOROURACIL
     Indication: ACTINIC KERATOSIS
     Route: 061

REACTIONS (3)
  - Application site oedema [Recovering/Resolving]
  - Application site vesicles [Recovering/Resolving]
  - Hypersensitivity [Recovering/Resolving]
